FAERS Safety Report 8593241-3 (Version None)
Quarter: 2012Q3

REPORT INFORMATION
  Report Type: 
  Country: None (occurrence: None)
  Receive Date: 20120814
  Receipt Date: 20120808
  Transmission Date: 20120928
  Serious: Yes (Hospitalization)
  Sender: FDA-Public Use
  Company Number: US-ASTRAZENECA-2011SE52564

PATIENT
  Age: 90 Year
  Sex: Female

DRUGS (4)
  1. OMEPRAZOLE [Suspect]
     Route: 048
  2. ACTONEL [Concomitant]
  3. NEXIUM [Suspect]
     Route: 048
  4. CELEBREX [Concomitant]

REACTIONS (6)
  - GASTRIC DISORDER [None]
  - DRUG DOSE OMISSION [None]
  - WEIGHT DECREASED [None]
  - ABDOMINAL PAIN UPPER [None]
  - DRUG INEFFECTIVE [None]
  - THYROID DISORDER [None]
